FAERS Safety Report 15231373 (Version 2)
Quarter: 2018Q4

REPORT INFORMATION
  Report Type: Spontaneous
  Country: IE (occurrence: IE)
  Receive Date: 20180802
  Receipt Date: 20181009
  Transmission Date: 20190204
  Serious: Yes (Hospitalization, Other)
  Sender: FDA-Public Use
  Company Number: PHHY2018IE062279

PATIENT
  Age: 12 Year
  Sex: Male

DRUGS (1)
  1. CLOROM [Suspect]
     Active Substance: CLARITHROMYCIN
     Indication: LOWER RESPIRATORY TRACT INFECTION
     Dosage: 250 MG, QD (ONE TABLET TAKEN ONLY (BROKEN IN HALF AND BOTH HALVES TAKEN WITH WATER)
     Route: 048
     Dates: start: 20180606

REACTIONS (6)
  - Miosis [Recovered/Resolved]
  - Muscle twitching [Recovered/Resolved]
  - Tremor [Recovered/Resolved]
  - Crying [Recovered/Resolved]
  - Loss of consciousness [Recovered/Resolved]
  - Disorientation [Recovered/Resolved]

NARRATIVE: CASE EVENT DATE: 20180606
